FAERS Safety Report 13900799 (Version 1)
Quarter: 2017Q3

REPORT INFORMATION
  Report Type: Spontaneous
  Country: US (occurrence: US)
  Receive Date: 20170823
  Receipt Date: 20170823
  Transmission Date: 20171127
  Serious: No
  Sender: FDA-Public Use
  Company Number: US-ASTRAZENECA-2007BM17689

PATIENT
  Sex: Female

DRUGS (3)
  1. EXENATIDE. [Concomitant]
     Active Substance: EXENATIDE
  2. NEXIUM [Suspect]
     Active Substance: ESOMEPRAZOLE MAGNESIUM
     Route: 048
  3. BYETTA [Suspect]
     Active Substance: EXENATIDE
     Dosage: UNK
     Route: 058

REACTIONS (2)
  - Abdominal pain upper [Unknown]
  - Tenderness [Unknown]
